FAERS Safety Report 5389790-1 (Version None)
Quarter: 2007Q3

REPORT INFORMATION
  Report Type: 
  Country: None (occurrence: None)
  Receive Date: 20070713
  Receipt Date: 20070706
  Transmission Date: 20080115
  Serious: Yes (Death, Other)
  Sender: FDA-Public Use
  Company Number: 056-C5013-06111290

PATIENT
  Age: 66 Year
  Sex: Female
  Weight: 55 kg

DRUGS (9)
  1. CC-5013 (LENALIDOMIDE) (CAPSULES) [Suspect]
     Indication: MULTIPLE MYELOMA
     Dosage: 15 MG, ORAL
     Route: 048
     Dates: start: 20061024, end: 20061101
  2. DEXAMETHASONE TAB [Suspect]
     Indication: MULTIPLE MYELOMA
     Dosage: 20 MG, ORAL
     Route: 048
  3. METROL [Concomitant]
  4. HYDROCORTISONE [Concomitant]
  5. ZOMETA [Concomitant]
  6. VFEND [Concomitant]
  7. VALACYCLOVIR HCL [Concomitant]
  8. LANSOPRAZOLE [Concomitant]
  9. OXYCONTIN [Concomitant]

REACTIONS (6)
  - BACTERIAL INFECTION [None]
  - BONE MARROW FAILURE [None]
  - OEDEMA PERIPHERAL [None]
  - PANCYTOPENIA [None]
  - SEPSIS [None]
  - TACHYCARDIA [None]
